FAERS Safety Report 22703720 (Version 3)
Quarter: 2024Q1

REPORT INFORMATION
  Report Type: Spontaneous
  Country: RU (occurrence: RU)
  Receive Date: 20230714
  Receipt Date: 20240306
  Transmission Date: 20240409
  Serious: Yes (Hospitalization)
  Sender: FDA-Public Use
  Company Number: RU-002147023-NVSC2023RU154783

PATIENT
  Age: 42 Year
  Sex: Female
  Weight: 96 kg

DRUGS (3)
  1. TRILEPTAL [Suspect]
     Active Substance: OXCARBAZEPINE
     Indication: Product used for unknown indication
     Dosage: 600 ML,(1G/ML) (SIC) ONCE/SINGLE
     Route: 065
     Dates: start: 20230702, end: 20230702
  2. ANAFRANIL [Suspect]
     Active Substance: CLOMIPRAMINE HYDROCHLORIDE
     Indication: Product used for unknown indication
     Dosage: 4-6 TABLETS (1G/ML) (SIC), ONCE/SINGLE
     Route: 065
     Dates: start: 20230702, end: 20230702
  3. QUETIAPINE [Concomitant]
     Active Substance: QUETIAPINE
     Indication: Product used for unknown indication
     Dosage: 200 ML (1G/ML) (SIC), ONCE/SINGLE
     Route: 065
     Dates: start: 20230702, end: 20230702

REACTIONS (1)
  - Toxicity to various agents [Recovered/Resolved]

NARRATIVE: CASE EVENT DATE: 20230703
